FAERS Safety Report 8322246-2 (Version None)
Quarter: 2012Q2

REPORT INFORMATION
  Report Type: 
  Country: None (occurrence: None)
  Receive Date: 20120430
  Receipt Date: 20120419
  Transmission Date: 20120825
  Serious: Yes (Other)
  Sender: FDA-Public Use
  Company Number: SE-JNJFOC-20120207184

PATIENT
  Sex: Female

DRUGS (5)
  1. REMICADE [Suspect]
     Route: 042
     Dates: start: 20111121, end: 20120131
  2. HUMIRA [Suspect]
     Indication: COLITIS ULCERATIVE
     Route: 042
     Dates: start: 20120221
  3. PREDNISONE TAB [Concomitant]
     Indication: COLITIS ULCERATIVE
     Route: 065
  4. REMICADE [Suspect]
     Indication: COLITIS ULCERATIVE
     Route: 042
     Dates: start: 20111014
  5. REMICADE [Suspect]
     Route: 042
     Dates: start: 20111031

REACTIONS (4)
  - ALOPECIA [None]
  - ANKYLOSING SPONDYLITIS [None]
  - SCIATICA [None]
  - PUSTULAR PSORIASIS [None]
